FAERS Safety Report 5493248-9 (Version None)
Quarter: 2007Q4

REPORT INFORMATION
  Report Type: 
  Country: None (occurrence: None)
  Receive Date: 20071022
  Receipt Date: 20071022
  Transmission Date: 20080405
  Serious: Yes (Other)
  Sender: FDA-Public Use
  Company Number: None

PATIENT
  Age: 75 Year
  Sex: Male

DRUGS (3)
  1. FOSAMAX [Suspect]
     Indication: OSTEOPOROSIS
     Dosage: 30MG WEEKLY ORAL
     Route: 048
  2. NOV IVA 800 [Concomitant]
  3. ACYCLOVAR [Concomitant]

REACTIONS (2)
  - BONE DISORDER [None]
  - PAIN IN JAW [None]
